FAERS Safety Report 6071515-8 (Version None)
Quarter: 2009Q1

REPORT INFORMATION
  Report Type: 
  Country: None (occurrence: None)
  Receive Date: 20090206
  Receipt Date: 20090206
  Transmission Date: 20090719
  Serious: No
  Sender: FDA-Public Use
  Company Number: None

PATIENT
  Age: 16 Year
  Sex: Female
  Weight: 99.7913 kg

DRUGS (2)
  1. FELDENE [Suspect]
     Indication: ARTHRITIS
     Dosage: 10 QD PO
     Route: 048
  2. FELODIPINE [Suspect]
     Dosage: 10 QD PO
     Route: 048

REACTIONS (2)
  - INTERCEPTED DRUG DISPENSING ERROR [None]
  - MEDICATION ERROR [None]
